FAERS Safety Report 4945716-3 (Version None)
Quarter: 2006Q1

REPORT INFORMATION
  Report Type: 
  Country: None (occurrence: None)
  Receive Date: 20060117
  Receipt Date: 20050503
  Transmission Date: 20060701
  Serious: Yes (Hospitalization)
  Sender: FDA-Public Use
  Company Number: A03200501319

PATIENT
  Age: 74 Year
  Sex: Female
  Weight: 68.93 kg

DRUGS (15)
  1. PLAVIX [Suspect]
     Indication: PHLEBITIS
     Dosage: 75 MG QD - ORAL
     Route: 048
     Dates: start: 20050319
  2. PLAVIX [Suspect]
     Indication: THROMBOSIS
     Dosage: 75 MG QD - ORAL
     Route: 048
     Dates: start: 20050319
  3. ATENOLOL [Concomitant]
  4. LEVOTHYROXINE SODIUM [Concomitant]
  5. LOVASTATIN [Concomitant]
  6. HYDROCHLOROTHIAZIDE [Concomitant]
  7. FEXOFENADINE HYDROCHLORIDE [Concomitant]
  8. ESOMEPRAZOLE [Concomitant]
  9. FLUTICASONE PROPIONATE [Concomitant]
  10. ALBUTEROL [Concomitant]
  11. CALCIUM GLUCONATE [Concomitant]
  12. FISH OIL [Concomitant]
  13. GLUCOSAMINE [Concomitant]
  14. VITAMIN E [Concomitant]
  15. TEMAZEPAM [Concomitant]

REACTIONS (2)
  - BLOOD CHOLESTEROL ABNORMAL [None]
  - HYPERTENSION [None]
